FAERS Safety Report 7190114-8 (Version None)
Quarter: 2010Q4

REPORT INFORMATION
  Report Type: 
  Country: None (occurrence: None)
  Receive Date: 20101223
  Receipt Date: 20101220
  Transmission Date: 20110411
  Serious: Yes (Death, Other)
  Sender: FDA-Public Use
  Company Number: FR-ROXANE LABORATORIES, INC.-2010-RO-01713RO

PATIENT
  Age: 72 Year
  Sex: Male

DRUGS (7)
  1. CYCLOPHOSPHAMIDE [Suspect]
     Indication: CHRONIC LYMPHOCYTIC LEUKAEMIA
     Dates: start: 20060901
  2. PREDNISONE [Suspect]
     Indication: AGRANULOCYTOSIS
     Dosage: 60 MG
  3. FLUDARABINE PHOSPHATE [Suspect]
     Indication: CHRONIC LYMPHOCYTIC LEUKAEMIA
     Dates: start: 20060901
  4. RITUXIMAB [Suspect]
     Indication: CHRONIC LYMPHOCYTIC LEUKAEMIA
     Dates: start: 20060901
  5. RITUXIMAB [Suspect]
     Indication: AGRANULOCYTOSIS
  6. CYCLOSPORINE [Suspect]
     Indication: IMMUNOSUPPRESSION
     Dosage: 100 MG
     Route: 048
  7. LENOGRASTIM [Concomitant]
     Indication: NEUTROPENIA

REACTIONS (2)
  - AGRANULOCYTOSIS [None]
  - GASTRIC HAEMORRHAGE [None]
